FAERS Safety Report 8379634-8 (Version None)
Quarter: 2012Q2

REPORT INFORMATION
  Report Type: 
  Country: None (occurrence: None)
  Receive Date: 20120523
  Receipt Date: 20120517
  Transmission Date: 20120825
  Serious: Yes (Hospitalization)
  Sender: FDA-Public Use
  Company Number: US-BAYER-2011-026287

PATIENT
  Age: 21 Year
  Sex: Female
  Weight: 54.422 kg

DRUGS (9)
  1. TYENOL [Concomitant]
  2. HYDROCODONE BITARTRATE AND ACETAMINOPHEN [Concomitant]
  3. DROSPIRENONE AND ETHINYL ESTRADIOL [Suspect]
     Indication: ORAL CONTRACEPTION
     Dosage: UNK
     Dates: start: 20071201, end: 20090501
  4. BENZOYL 4% [Concomitant]
  5. CIPROFLOXACIN [Concomitant]
  6. PHENAZOPYRIDINE HCL TAB [Concomitant]
  7. NAPROXEN (ALEVE) [Concomitant]
  8. METRONIDAZOLE [Concomitant]
  9. YASMIN [Suspect]
     Indication: ORAL CONTRACEPTION
     Dosage: UNK
     Dates: start: 20071201, end: 20090501

REACTIONS (8)
  - INJURY [None]
  - DEEP VEIN THROMBOSIS [None]
  - ANXIETY [None]
  - PULMONARY EMBOLISM [None]
  - EMOTIONAL DISTRESS [None]
  - GENERAL PHYSICAL HEALTH DETERIORATION [None]
  - PULMONARY FIBROSIS [None]
  - PAIN [None]
